FAERS Safety Report 20569147 (Version 2)
Quarter: 2022Q1

REPORT INFORMATION
  Report Type: Report from Study
  Country: US (occurrence: US)
  Receive Date: 20220308
  Receipt Date: 20220310
  Transmission Date: 20220423
  Serious: Yes (Death, Other)
  Sender: FDA-Public Use
  Company Number: US-ABBVIE-22K-163-4307400-00

PATIENT
  Age: 67 Year
  Sex: Male
  Weight: 62.652 kg

DRUGS (1)
  1. CREON [Suspect]
     Active Substance: PANCRELIPASE AMYLASE\PANCRELIPASE LIPASE\PANCRELIPASE PROTEASE
     Indication: Product used for unknown indication
     Dosage: TAKE 2 CAPSULES WITH MEALS AND 2 CAPSULES WITH SNACKS DAILY
     Route: 048

REACTIONS (5)
  - Laryngeal cancer [Fatal]
  - Emphysema [Unknown]
  - Chronic obstructive pulmonary disease [Unknown]
  - Blood glucose increased [Unknown]
  - Arthritis [Unknown]

NARRATIVE: CASE EVENT DATE: 20211101
